FAERS Safety Report 17661647 (Version 1)
Quarter: 2020Q2

REPORT INFORMATION
  Report Type: Spontaneous
  Country: US (occurrence: US)
  Receive Date: 20200413
  Receipt Date: 20200413
  Transmission Date: 20200713
  Serious: Yes (Death, Hospitalization, Other)
  Sender: FDA-Public Use
  Company Number: US-ALEXION PHARMACEUTICALS INC.-A202004952

PATIENT
  Sex: Female

DRUGS (1)
  1. SOLIRIS [Suspect]
     Active Substance: ECULIZUMAB
     Indication: MYASTHENIA GRAVIS
     Dosage: UNK
     Route: 065
     Dates: end: 20181203

REACTIONS (5)
  - Death [Fatal]
  - Apnoeic attack [Unknown]
  - Pharyngeal swelling [Unknown]
  - Hip fracture [Unknown]
  - Fall [Unknown]
